FAERS Safety Report 7216273-6 (Version None)
Quarter: 2011Q1

REPORT INFORMATION
  Report Type: 
  Country: None (occurrence: None)
  Receive Date: 20110107
  Receipt Date: 20110107
  Transmission Date: 20110831
  Serious: Yes (Death, Hospitalization)
  Sender: FDA-Public Use
  Company Number: US-B.I. PHARMACEUTICALS,INC./RIDGEFIELD-2010-BP-07034BP

PATIENT
  Sex: Male
  Weight: 85.9 kg

DRUGS (10)
  1. DABIGATRAN [Suspect]
     Indication: CEREBROVASCULAR ACCIDENT PROPHYLAXIS
     Route: 048
     Dates: start: 20071120, end: 20100621
  2. DIAZEPAM [Concomitant]
     Route: 048
  3. POSTTREATMENT (DABIGATRAN) [Suspect]
     Indication: ATRIAL FIBRILLATION
  4. ZAROXOLYN [Concomitant]
     Route: 048
  5. LOVASTATIN [Concomitant]
     Route: 048
  6. DABIGATRAN [Suspect]
     Indication: ATRIAL FIBRILLATION
  7. POSTTREATMENT (DABIGATRAN) [Suspect]
     Indication: CEREBROVASCULAR ACCIDENT PROPHYLAXIS
     Route: 048
     Dates: start: 20071120, end: 20100621
  8. METOPROLOL TARTRATE [Concomitant]
     Route: 048
  9. FUROSEMIDE [Concomitant]
     Route: 048
  10. COZAAR [Concomitant]
     Route: 048

REACTIONS (5)
  - PLEURAL EFFUSION [None]
  - INTENTIONAL OVERDOSE [None]
  - MENTAL STATUS CHANGES [None]
  - PLEURAL HAEMORRHAGE [None]
  - ELECTROLYTE IMBALANCE [None]
